FAERS Safety Report 14644223 (Version 2)
Quarter: 2018Q2

REPORT INFORMATION
  Report Type: Spontaneous
  Country: BE (occurrence: BE)
  Receive Date: 20180315
  Receipt Date: 20180423
  Transmission Date: 20180711
  Serious: Yes (Death, Hospitalization, Other)
  Sender: FDA-Public Use
  Company Number: BE-BRISTOL-MYERS SQUIBB COMPANY-BMS-2018-024613

PATIENT
  Age: 63 Year
  Sex: Male
  Weight: 75 kg

DRUGS (9)
  1. CRESTOR [Suspect]
     Active Substance: ROSUVASTATIN CALCIUM
     Indication: PRODUCT USED FOR UNKNOWN INDICATION
     Dosage: 20 MG 1 DAY
     Route: 048
  2. L-THYROXINE                        /00068001/ [Concomitant]
     Active Substance: LEVOTHYROXINE
     Indication: THYROIDECTOMY
     Dosage: 50 G, 1 DAY
     Route: 048
  3. AMOXICILLINE SANDOZ DISPER [Concomitant]
     Indication: PRODUCT USED FOR UNKNOWN INDICATION
     Dosage: 3 G, UNK
     Route: 048
  4. OMEPRAZOLE EG [Concomitant]
     Active Substance: OMEPRAZOLE
     Indication: DYSPEPSIA
     Route: 065
  5. OPDIVO [Suspect]
     Active Substance: NIVOLUMAB
     Indication: PRODUCT USED FOR UNKNOWN INDICATION
     Dosage: 450 MG, 1 MONTH
     Route: 042
     Dates: start: 20171207
  6. OMEPRAZOLE EG [Concomitant]
     Active Substance: OMEPRAZOLE
     Indication: GASTROOESOPHAGEAL REFLUX DISEASE
     Route: 065
  7. OMEPRAZOLE EG [Concomitant]
     Active Substance: OMEPRAZOLE
     Indication: DYSPEPSIA
     Route: 065
  8. OMEPRAZOLE EG [Concomitant]
     Active Substance: OMEPRAZOLE
     Indication: GASTROOESOPHAGEAL REFLUX DISEASE
     Dosage: 20 MG, UNK
     Route: 048
  9. FOLAVIT [Concomitant]
     Active Substance: FOLIC ACID
     Indication: PRODUCT USED FOR UNKNOWN INDICATION
     Dosage: 4 MG, 1 DAY
     Route: 048

REACTIONS (10)
  - Tracheal stenosis [Fatal]
  - Stridor [Fatal]
  - Respiratory failure [Fatal]
  - Myositis [Fatal]
  - Coma [Fatal]
  - Encephalopathy [Fatal]
  - Staphylococcal infection [Fatal]
  - Atrioventricular block complete [Fatal]
  - Escherichia infection [Fatal]
  - Dyspnoea [Fatal]

NARRATIVE: CASE EVENT DATE: 20171225
